FAERS Safety Report 16400803 (Version 1)
Quarter: 2019Q2

REPORT INFORMATION
  Report Type: Spontaneous
  Country: US (occurrence: US)
  Receive Date: 20190606
  Receipt Date: 20190606
  Transmission Date: 20190711
  Serious: No
  Sender: FDA-Public Use
  Company Number: US-TEVA-2019-US-1049133

PATIENT
  Sex: Female

DRUGS (1)
  1. BUPRENORPHINE ACTAVIS [Suspect]
     Active Substance: BUPRENORPHINE
     Indication: BACK PAIN
     Route: 048

REACTIONS (1)
  - Drug ineffective [Unknown]
